FAERS Safety Report 4596918-X (Version None)
Quarter: 2005Q1

REPORT INFORMATION
  Report Type: 
  Country: None (occurrence: None)
  Receive Date: 20050228
  Receipt Date: 20041209
  Transmission Date: 20050727
  Serious: Yes (Other)
  Sender: FDA-Public Use
  Company Number: 2004107633

PATIENT
  Age: 60 Year
  Sex: Female
  Weight: 58.0604 kg

DRUGS (12)
  1. CELEBREX [Suspect]
     Indication: ARTHRALGIA
     Dosage: 200 MG (200 MG, PRN), ORAL
     Route: 048
     Dates: start: 19990101, end: 20040101
  2. CELEBREX [Suspect]
     Indication: BACK PAIN
     Dosage: 200 MG (200 MG, PRN), ORAL
     Route: 048
     Dates: start: 19990101, end: 20040101
  3. LIPITOR [Suspect]
     Indication: BLOOD CHOLESTEROL
     Dosage: 20 MG (20 MG, 1 IN 1 D), ORAL
     Route: 048
  4. RISEDRONATE SODIUM (RISEDRONATE SODIUM) [Concomitant]
  5. ALENDRONATE SODIUM [Concomitant]
  6. HEPAGRISEVIT FORTE-N TABLET (CYANOCOBALAMIN, FOLIC ACID, PYRIDOXINE HY [Concomitant]
  7. MULTIVITAMINS (ASCORBIC ACID, ERGOCALCIFEROL, FOLIC ACID, NICOTINAMIDE [Concomitant]
  8. ADVICOR - SLOW RELEASE (LOVASTATIN, NICOTINIC ACID) [Concomitant]
  9. ASPIRIN [Concomitant]
  10. CLOPIDOGREL BISULFATE [Concomitant]
  11. LEVOTHYROXINE SODIUM [Concomitant]
  12. WARFARIN SODIUM [Concomitant]

REACTIONS (7)
  - AUTOIMMUNE THYROIDITIS [None]
  - DRUG EFFECT DECREASED [None]
  - HAEMORRHAGE URINARY TRACT [None]
  - PAIN IN EXTREMITY [None]
  - RENAL DISORDER [None]
  - RENAL INFARCT [None]
  - THERAPY NON-RESPONDER [None]
